FAERS Safety Report 8613254-2 (Version None)
Quarter: 2012Q3

REPORT INFORMATION
  Report Type: 
  Country: None (occurrence: None)
  Receive Date: 20120822
  Receipt Date: 20120814
  Transmission Date: 20120928
  Serious: Yes (Hospitalization)
  Sender: FDA-Public Use
  Company Number: PHHO2012GB009849

PATIENT
  Sex: Male
  Weight: 80.3 kg

DRUGS (9)
  1. WARFARIN SODIUM [Suspect]
     Indication: CARDIAC FAILURE
     Dosage: AS DIRECTED
     Dates: start: 20100924, end: 20120621
  2. TAMSULOSIN HCL [Concomitant]
     Indication: PROSTATE CANCER
     Dosage: UNK
     Dates: start: 20060101
  3. ENALAPRIL MALEATE [Suspect]
     Dosage: DOUBLE BLINDED
     Route: 048
     Dates: start: 20120626
  4. BLINDED LCZ696 [Suspect]
     Dosage: DOUBLE BLINDED
     Route: 048
     Dates: start: 20120626
  5. ACETYLSALICYLIC ACID SRT [Suspect]
     Indication: CARDIAC DISORDER
     Dosage: 75 MG, UNK
     Dates: start: 20100923, end: 20120621
  6. BLINDED NO TREATMENT RECEIVED [Suspect]
     Indication: CARDIAC FAILURE CHRONIC
     Dosage: DOUBLE BLINDED
     Route: 048
     Dates: start: 20120316, end: 20120621
  7. BLINDED LCZ696 [Suspect]
     Indication: CARDIAC FAILURE CHRONIC
     Dosage: DOUBLE BLINDED
     Route: 048
     Dates: start: 20120316, end: 20120621
  8. ENALAPRIL MALEATE [Suspect]
     Indication: CARDIAC FAILURE CHRONIC
     Dosage: DOUBLE BLINDED
     Route: 048
     Dates: start: 20120316, end: 20120621
  9. BLINDED NO TREATMENT RECEIVED [Suspect]
     Dosage: DOUBLE BLINDED
     Route: 048
     Dates: start: 20120626

REACTIONS (1)
  - MALLORY-WEISS SYNDROME [None]
